FAERS Safety Report 8484007-3 (Version None)
Quarter: 2012Q2

REPORT INFORMATION
  Report Type: 
  Country: None (occurrence: None)
  Receive Date: 20120402
  Receipt Date: 20110203
  Transmission Date: 20120825
  Serious: Yes (Hospitalization)
  Sender: FDA-Public Use
  Company Number: A-US2011-44656

PATIENT
  Age: 26 Year
  Sex: Female

DRUGS (2)
  1. REVATIO [Concomitant]
  2. EPOPROSTENOL SODIUM [Suspect]
     Indication: PULMONARY ARTERIAL HYPERTENSION
     Dosage: 12 NG/KG, PER MIN INTRAVENOUS
     Route: 042
     Dates: start: 20101115

REACTIONS (1)
  - OEDEMA [None]
